FAERS Safety Report 16269810 (Version 6)
Quarter: 2019Q3

REPORT INFORMATION
  Report Type: Spontaneous
  Country: US (occurrence: US)
  Receive Date: 20190503
  Receipt Date: 20190726
  Transmission Date: 20191004
  Serious: Yes (Other)
  Sender: FDA-Public Use
  Company Number: US-PFIZER INC-2019186438

PATIENT
  Age: 65 Year
  Sex: Female
  Weight: 87 kg

DRUGS (1)
  1. IBRANCE [Suspect]
     Active Substance: PALBOCICLIB
     Indication: BREAST CANCER METASTATIC
     Dosage: 125 MG, CYCLIC (D1-21 EVERY 28 DAYS)/ DAYS 1-21 Q28 DAYS
     Route: 048
     Dates: start: 20190414, end: 201907

REACTIONS (12)
  - Head injury [Unknown]
  - Contusion [Unknown]
  - Vomiting [Unknown]
  - Tongue exfoliation [Unknown]
  - Blood calcium decreased [Unknown]
  - Fall [Unknown]
  - Neoplasm progression [Unknown]
  - Tongue discolouration [Unknown]
  - Eye disorder [Unknown]
  - Fungal infection [Unknown]
  - Nausea [Unknown]
  - Diarrhoea [Unknown]

NARRATIVE: CASE EVENT DATE: 2019
